FAERS Safety Report 5406929-X (Version None)
Quarter: 2007Q3

REPORT INFORMATION
  Report Type: 
  Country: None (occurrence: None)
  Receive Date: 20070802
  Receipt Date: 20070718
  Transmission Date: 20080115
  Serious: Yes (Life-Threatening, Hospitalization)
  Sender: FDA-Public Use
  Company Number: 100#03#2007-02806

PATIENT
  Age: 62 Year
  Sex: Male

DRUGS (7)
  1. ALPRAZOLAM [Suspect]
     Indication: ANXIETY
  2. DIAZEPAM [Suspect]
     Indication: DRUG DEPENDENCE
     Dosage: 7MG (2MG IN THE MORNING AND 5 AT NIGHT); 10 MG
  3. ZOPICLONE (ZOPICLONE) (ZOPICLONE) [Suspect]
     Indication: DRUG DEPENDENCE
     Dosage: 7.5MG AT NIGHT (1/1 DAYS)
  4. LORAZEPAM [Suspect]
     Indication: ANXIETY
     Dosage: 1.5MG (1 MG IN THE MORNING AND 0.5MG IN THE EVENING) (1/1 DAYS); 1MG TWICE DAILY; UP TO 6MG
  5. LORAZEPAM [Suspect]
     Indication: ANXIETY
     Dosage: 1.5MG (1 MG IN THE MORNING AND 0.5MG IN THE EVENING) (1/1 DAYS); 1MG TWICE DAILY; UP TO 6MG
  6. FLUOXETINE [Suspect]
     Indication: ANXIETY
     Dosage: 20MG (1/1 DAYS)
  7. TEMAZEPAM [Suspect]
     Indication: ANXIETY

REACTIONS (12)
  - AGITATION [None]
  - ANXIETY [None]
  - DRUG DEPENDENCE [None]
  - DRUG WITHDRAWAL SYNDROME [None]
  - IMPULSIVE BEHAVIOUR [None]
  - INSOMNIA [None]
  - INTENTIONAL SELF-INJURY [None]
  - PANIC ATTACK [None]
  - SELF INJURIOUS BEHAVIOUR [None]
  - SOMATIC DELUSION [None]
  - SUICIDE ATTEMPT [None]
  - TREATMENT NONCOMPLIANCE [None]
